FAERS Safety Report 14116767 (Version 1)
Quarter: 2017Q4

REPORT INFORMATION
  Report Type: Report from Study
  Country: US (occurrence: US)
  Receive Date: 20171023
  Receipt Date: 20171023
  Transmission Date: 20180321
  Serious: Yes (Other)
  Sender: FDA-Public Use
  Company Number: PHEH2017US033753

PATIENT
  Sex: Male

DRUGS (1)
  1. OCTREOTIDE WITH POLY(D L-LACTIDE-CO-GLYCOLIDE) [Suspect]
     Active Substance: OCTREOTIDE ACETATE
     Indication: PRODUCT USED FOR UNKNOWN INDICATION
     Route: 065

REACTIONS (1)
  - Small intestinal haemorrhage [Unknown]
